FAERS Safety Report 23743447 (Version 1)
Quarter: 2024Q2

REPORT INFORMATION
  Report Type: Spontaneous
  Country: DE (occurrence: DE)
  Receive Date: 20240415
  Receipt Date: 20240415
  Transmission Date: 20240716
  Serious: Yes (Other)
  Sender: FDA-Public Use
  Company Number: DE-PFIZER INC-202400085047

PATIENT
  Sex: Male

DRUGS (2)
  1. INLYTA [Suspect]
     Active Substance: AXITINIB
     Indication: Metastatic renal cell carcinoma
     Dosage: 2X5MG
  2. PEMBROLIZUMAB [Concomitant]
     Active Substance: PEMBROLIZUMAB

REACTIONS (2)
  - Colitis ulcerative [Unknown]
  - Diarrhoea [Unknown]
